FAERS Safety Report 5104139-7 (Version None)
Quarter: 2006Q3

REPORT INFORMATION
  Report Type: 
  Country: None (occurrence: None)
  Receive Date: 20060911
  Receipt Date: 20060830
  Transmission Date: 20061208
  Serious: Yes (Other)
  Sender: FDA-Public Use
  Company Number: A-CH2006-11541

PATIENT
  Age: 61 Year
  Sex: Female

DRUGS (2)
  1. ZAVESCA [Suspect]
     Indication: GAUCHER'S DISEASE
     Dosage: 100 MG, TID, ORAL
     Route: 048
     Dates: start: 20050421, end: 20060215
  2. ZAVESCA [Suspect]
     Indication: GAUCHER'S DISEASE
     Dosage: 100 MG, TID, ORAL
     Route: 048
     Dates: start: 20060615

REACTIONS (9)
  - CARPAL TUNNEL SYNDROME [None]
  - DERMATOMYOSITIS [None]
  - ELECTROMYOGRAM ABNORMAL [None]
  - MOTOR NEURONE DISEASE [None]
  - MUSCULAR WEAKNESS [None]
  - NERVE CONDUCTION STUDIES ABNORMAL [None]
  - PERIPHERAL SENSORY NEUROPATHY [None]
  - POLYNEUROPATHY [None]
  - SENSORY LOSS [None]
